FAERS Safety Report 4327164-2 (Version None)
Quarter: 2004Q1

REPORT INFORMATION
  Report Type: 
  Country: None (occurrence: None)
  Receive Date: 20040330
  Receipt Date: 20040319
  Transmission Date: 20041129
  Serious: Yes (Death)
  Sender: FDA-Public Use
  Company Number: US-GLAXOSMITHKLINE-B0327545A

PATIENT

DRUGS (3)
  1. TOPOTECAN [Suspect]
     Indication: SMALL CELL LUNG CANCER STAGE UNSPECIFIED
     Dosage: 1.25MGM2 PER DAY
     Route: 042
  2. PACLITAXEL [Suspect]
     Indication: SMALL CELL LUNG CANCER STAGE UNSPECIFIED
     Dosage: 135MGM2 PER DAY
     Route: 042
  3. GRANULOCYTE COLONY-STIMULATING FACTOR [Concomitant]
     Indication: PROPHYLAXIS
     Dosage: 5UGK PER DAY
     Route: 058

REACTIONS (1)
  - RENAL FAILURE [None]
